FAERS Safety Report 4959175-8 (Version None)
Quarter: 2006Q1

REPORT INFORMATION
  Report Type: 
  Country: None (occurrence: None)
  Receive Date: 20060127
  Receipt Date: 20041201
  Transmission Date: 20060701
  Serious: Yes (Hospitalization)
  Sender: FDA-Public Use
  Company Number: 04-10-1416

PATIENT
  Age: 60 Year
  Sex: Female

DRUGS (8)
  1. CLOZAPINE [Suspect]
     Indication: PSYCHOTIC DISORDER
     Dosage: 600 MG QD, ORAL
     Route: 048
     Dates: start: 20030301, end: 20040913
  2. LIPITOR [Concomitant]
  3. INSULIN-REGULAR (INSULIN) [Concomitant]
  4. GLUCOPHAGE [Concomitant]
  5. GLUCOTROL [Concomitant]
  6. NITRO (GLYCERYL TRINITRATE) [Concomitant]
  7. FERROUS SULFATE TAB [Concomitant]
  8. NPH INSULIN [Concomitant]

REACTIONS (1)
  - PSYCHIATRIC SYMPTOM [None]
